FAERS Safety Report 10500105 (Version 1)
Quarter: 2014Q4

REPORT INFORMATION
  Report Type: Spontaneous
  Country: US (occurrence: US)
  Receive Date: 20141006
  Receipt Date: 20141006
  Transmission Date: 20150528
  Serious: No
  Sender: FDA-Public Use
  Company Number: US-AMGEN INC.-USASP2014057357

PATIENT
  Sex: Female
  Weight: 79.37 kg

DRUGS (1)
  1. PROLIA [Suspect]
     Active Substance: DENOSUMAB
     Indication: OSTEOPOROSIS POSTMENOPAUSAL
     Dosage: UNK
     Route: 065

REACTIONS (6)
  - Body height decreased [Unknown]
  - Gastrointestinal disorder [Unknown]
  - Menopausal symptoms [Unknown]
  - Hypogonadism [Unknown]
  - Dyspepsia [Unknown]
  - Vitamin D deficiency [Unknown]
